FAERS Safety Report 8422713-7 (Version None)
Quarter: 2012Q2

REPORT INFORMATION
  Report Type: 
  Country: None (occurrence: None)
  Receive Date: 20120525
  Receipt Date: 20120525
  Transmission Date: 20120825
  Serious: Yes (Other)
  Sender: FDA-Public Use
  Company Number: 2011028658

PATIENT
  Age: 72 Year
  Sex: Female
  Weight: 75.2971 kg

DRUGS (24)
  1. HIZENTRA [Suspect]
     Indication: IMMUNODEFICIENCY COMMON VARIABLE
     Dosage: 1X/WEEK, 50 ML PER 4 SITES OVER 1 HOUR 14 MINUTES 20% CONCENTRATION, SUBCUTANEOUS
     Route: 058
     Dates: start: 20110223
  2. HIZENTRA [Suspect]
     Indication: IMMUNODEFICIENCY COMMON VARIABLE
     Dosage: 10 G 1X/WEEK, 4 SITES OVER 1 HOUR 14 MINUTES IN AUG-2011, SUBCUTANEOUS
     Route: 058
     Dates: start: 20110801
  3. IPRATROPIUM BROMIDE [Concomitant]
  4. CLONAZEPAM [Concomitant]
  5. METOPROLOL SUCCINATE [Concomitant]
  6. LORTAB [Concomitant]
  7. PLAVIX [Concomitant]
  8. HIZENTRA [Suspect]
     Indication: IMMUNODEFICIENCY COMMON VARIABLE
  9. HIZENTRA [Suspect]
     Indication: IMMUNODEFICIENCY COMMON VARIABLE
     Dosage: 2 G
  10. HIZENTRA [Suspect]
     Indication: IMMUNODEFICIENCY COMMON VARIABLE
     Dosage: 4G
  11. HIZENTRA [Suspect]
     Indication: IMMUNODEFICIENCY COMMON VARIABLE
     Dosage: 10 G, IN 4 SITES OVER 1 HOUR, 14 MINUTES, SUBCUTANEOUS
     Route: 058
     Dates: start: 20110421
  12. PULMICORT [Concomitant]
  13. ALBUTEROL [Concomitant]
  14. TICLID [Concomitant]
  15. HIZENTRA [Suspect]
     Indication: IMMUNODEFICIENCY COMMON VARIABLE
     Dosage: SUBCUTANEOUS
     Route: 058
     Dates: start: 20110801
  16. OMEPRAZOLE [Concomitant]
  17. LISINOPRIL [Concomitant]
  18. ASPIRIN [Concomitant]
  19. SINGULAIR [Concomitant]
  20. ZANTAC [Concomitant]
  21. SIMVASTATIN [Concomitant]
  22. PROTONIX [Concomitant]
  23. ALLEGRA [Concomitant]
  24. ACIDOPHILUS LACTOBACILLUS (LACTOBACILLUS ACIDOPHILUS) [Concomitant]

REACTIONS (8)
  - ILL-DEFINED DISORDER [None]
  - UPPER RESPIRATORY TRACT INFECTION [None]
  - DIARRHOEA [None]
  - VIRAL INFECTION [None]
  - OROPHARYNGEAL PAIN [None]
  - ABDOMINAL PAIN UPPER [None]
  - PNEUMONIA [None]
  - INFLUENZA [None]
